FAERS Safety Report 4498849-2 (Version None)
Quarter: 2004Q4

REPORT INFORMATION
  Report Type: 
  Country: None (occurrence: None)
  Receive Date: 20041108
  Receipt Date: 20041027
  Transmission Date: 20050328
  Serious: Yes (Hospitalization, Other)
  Sender: FDA-Public Use
  Company Number: HQWYE169829OCT04

PATIENT
  Age: 3 Year
  Sex: Female

DRUGS (1)
  1. CHILDREN'S ADVIL [Suspect]
     Indication: PYREXIA
     Dosage: ORAL
     Route: 048
     Dates: start: 20040924, end: 20040924

REACTIONS (7)
  - HAEMATURIA [None]
  - HYPERTENSION [None]
  - LEUKOCYTURIA [None]
  - NEPHRITIS [None]
  - PROTEINURIA [None]
  - RENAL DISORDER [None]
  - RENAL INJURY [None]
